FAERS Safety Report 7409531-3 (Version None)
Quarter: 2011Q2

REPORT INFORMATION
  Report Type: 
  Country: None (occurrence: None)
  Receive Date: 20110412
  Receipt Date: 20110401
  Transmission Date: 20111010
  Serious: Yes (Hospitalization, Other)
  Sender: FDA-Public Use
  Company Number: PHHY2010BR74511

PATIENT
  Sex: Female
  Weight: 78 kg

DRUGS (5)
  1. VITALUX PLUS [Suspect]
     Indication: EYE DISORDER
     Dosage: 1 TAB DAILY
     Route: 048
     Dates: end: 20101102
  2. CLOPIDOGREL [Concomitant]
     Dosage: 75 MG, DAILYO
     Route: 048
  3. DIOVAN AMLO FIX [Suspect]
     Indication: HYPERTENSION
     Dosage: 1 TABLET DAILY
     Route: 048
  4. CRESTOR [Concomitant]
     Dosage: 20 MG, DAILY
     Route: 048
  5. ASPIRIN [Concomitant]
     Indication: ANTICOAGULANT THERAPY
     Dosage: 1 TAB DAILY
     Route: 048

REACTIONS (1)
  - CATHETERISATION CARDIAC [None]
